FAERS Safety Report 7878683-3 (Version None)
Quarter: 2011Q4

REPORT INFORMATION
  Report Type: 
  Country: None (occurrence: None)
  Receive Date: 20111018
  Receipt Date: 20110307
  Transmission Date: 20120403
  Serious: Yes (Other)
  Sender: FDA-Public Use
  Company Number: 2011P1004795

PATIENT
  Age: 59 Year
  Sex: Female
  Weight: 54.4316 kg

DRUGS (4)
  1. FENTANYL [Suspect]
     Indication: PAIN
     Dosage: 1 PATCH;Q72H;TDER 2 PATCHES; Q72H;TDER 1 PATCH ;Q72H;TDER
     Route: 062
     Dates: start: 20110306, end: 20110307
  2. FENTANYL [Suspect]
     Indication: PAIN
     Dosage: 1 PATCH;Q72H;TDER 2 PATCHES; Q72H;TDER 1 PATCH ;Q72H;TDER
     Route: 062
     Dates: start: 20110307
  3. FENTANYL [Suspect]
     Indication: PAIN
     Dosage: 1 PATCH;Q72H;TDER 2 PATCHES; Q72H;TDER 1 PATCH ;Q72H;TDER
     Route: 062
     Dates: start: 20110304, end: 20110306
  4. DIAZEPAM [Concomitant]

REACTIONS (4)
  - DYSPNOEA [None]
  - URINARY TRACT INFECTION [None]
  - NAUSEA [None]
  - FEAR [None]
